FAERS Safety Report 5120892-0 (Version None)
Quarter: 2006Q4

REPORT INFORMATION
  Report Type: 
  Country: None (occurrence: None)
  Receive Date: 20061005
  Receipt Date: 20060511
  Transmission Date: 20070319
  Serious: Yes (Other)
  Sender: FDA-Public Use
  Company Number: PHRM2006FR01605

PATIENT
  Age: 46 Year
  Sex: Female
  Weight: 57 kg

DRUGS (3)
  1. HAVLANE [Concomitant]
     Route: 048
  2. MIACALCIN [Suspect]
     Indication: COMPLEX REGIONAL PAIN SYNDROME
     Dosage: 50 IU/ML, QD
     Route: 058
     Dates: start: 20060503, end: 20060503
  3. MIACALCIN [Suspect]
     Dosage: 50 IU/ML, QD
     Route: 058
     Dates: start: 20060506, end: 20060506

REACTIONS (7)
  - CIRCUMSTANCE OR INFORMATION CAPABLE OF LEADING TO MEDICATION ERROR [None]
  - DIARRHOEA [None]
  - HEADACHE [None]
  - LOSS OF CONSCIOUSNESS [None]
  - NAUSEA [None]
  - PARAESTHESIA [None]
  - VOMITING [None]
